FAERS Safety Report 7759791-4 (Version None)
Quarter: 2011Q3

REPORT INFORMATION
  Report Type: 
  Country: None (occurrence: None)
  Receive Date: 20110919
  Receipt Date: 20110915
  Transmission Date: 20111222
  Serious: Yes (Other)
  Sender: FDA-Public Use
  Company Number: US-AMGEN-USASP2011045243

PATIENT
  Age: 51 Year
  Sex: Female

DRUGS (2)
  1. REMICADE [Concomitant]
  2. ENBREL [Suspect]
     Indication: RHEUMATOID ARTHRITIS
     Dosage: 50 MG, QWK
     Dates: start: 20081115

REACTIONS (4)
  - ROTATOR CUFF SYNDROME [None]
  - LUNG DISORDER [None]
  - DRUG INEFFECTIVE [None]
  - JOINT INJURY [None]
